FAERS Safety Report 25050731 (Version 1)
Quarter: 2025Q1

REPORT INFORMATION
  Report Type: Spontaneous
  Country: US (occurrence: None)
  Receive Date: 20250304
  Receipt Date: 20250304
  Transmission Date: 20250409
  Serious: Yes (Other)
  Sender: FDA-CTU
  Company Number: None

PATIENT
  Age: 56 Year
  Sex: Female
  Weight: 58.97 kg

DRUGS (4)
  1. CORTICOTROPIN [Suspect]
     Active Substance: CORTICOTROPIN
     Indication: Multiple sclerosis
     Dosage: 80 IU DAILY SUBCUTANEOUS
     Route: 058
     Dates: start: 20240516
  2. BACLOFEN [Concomitant]
     Active Substance: BACLOFEN
  3. NAPROXEN [Concomitant]
     Active Substance: NAPROXEN
  4. TYSABRI [Concomitant]
     Active Substance: NATALIZUMAB

REACTIONS (3)
  - Back pain [None]
  - Multiple sclerosis [None]
  - Sleep disorder [None]

NARRATIVE: CASE EVENT DATE: 20250304
